FAERS Safety Report 6279979-1 (Version None)
Quarter: 2009Q3

REPORT INFORMATION
  Report Type: 
  Country: None (occurrence: None)
  Receive Date: 20090723
  Receipt Date: 20090505
  Transmission Date: 20100115
  Serious: Yes (Hospitalization)
  Sender: FDA-Public Use
  Company Number: US-AMGEN-KDL345981

PATIENT
  Age: 84 Year
  Sex: Female
  Weight: 63.6 kg

DRUGS (13)
  1. PROCRIT [Suspect]
     Indication: ANAEMIA
  2. UNSPECIFIED OPHTHALMIC PREPARATION [Concomitant]
  3. VITAMIN D [Concomitant]
  4. AVANDIA [Concomitant]
  5. POTASSIUM CHLORIDE [Concomitant]
  6. ASCORBIC ACID [Concomitant]
  7. ASPIRIN [Concomitant]
     Route: 048
  8. DIOVAN [Concomitant]
     Route: 048
  9. ZOCOR [Concomitant]
     Route: 048
  10. PRANDIN [Concomitant]
     Route: 048
  11. ZITHROMAX [Concomitant]
  12. NEXIUM [Concomitant]
  13. BISACODYL [Concomitant]

REACTIONS (2)
  - BLOOD COUNT ABNORMAL [None]
  - CEREBROVASCULAR ACCIDENT [None]
